FAERS Safety Report 8609182-9 (Version None)
Quarter: 2012Q3

REPORT INFORMATION
  Report Type: 
  Country: None (occurrence: None)
  Receive Date: 20120821
  Receipt Date: 20120809
  Transmission Date: 20120928
  Serious: No
  Sender: FDA-Public Use
  Company Number: US-ASTRAZENECA-2012SE56253

PATIENT
  Age: 25329 Day
  Sex: Female

DRUGS (12)
  1. BISOPROLOL FUMARATE [Concomitant]
     Indication: TACHYCARDIA
  2. CRESTOR [Suspect]
     Route: 048
     Dates: start: 20120720
  3. CRESTOR [Suspect]
     Indication: HYPERLIPIDAEMIA
     Route: 048
  4. CRESTOR [Suspect]
     Route: 048
     Dates: start: 20120720
  5. FLUTICASONE PROPIONATE [Suspect]
     Indication: ASTHMA
     Dosage: 250/50 MG, 2 PUFFS AT NIGHT
     Route: 048
     Dates: start: 20120113
  6. RAMIPRIL [Concomitant]
     Indication: HYPERTENSION
  7. FLUTICASONE PROPIONATE [Suspect]
     Dosage: 250/50 MG, 2 PUFFS AT NIGHT
     Route: 048
     Dates: end: 20120709
  8. CHLORTHALIDONE [Concomitant]
     Indication: HYPERTENSION
  9. ALBUTEROL [Concomitant]
     Indication: ASTHMA
  10. CRESTOR [Suspect]
     Indication: DYSLIPIDAEMIA
     Route: 048
  11. FLUTICASONE PROPIONATE [Suspect]
     Dosage: 500/50 MG, 2 PUFFS AT NIGHT
     Route: 048
     Dates: start: 20120323
  12. NEXIUM [Concomitant]
     Indication: GASTROOESOPHAGEAL REFLUX DISEASE

REACTIONS (2)
  - SODIUM RETENTION [None]
  - MUSCLE SPASMS [None]
